FAERS Safety Report 24991355 (Version 2)
Quarter: 2025Q1

REPORT INFORMATION
  Report Type: Spontaneous
  Country: JP (occurrence: JP)
  Receive Date: 20250220
  Receipt Date: 20250325
  Transmission Date: 20250409
  Serious: Yes (Hospitalization)
  Sender: MERCK SHARP & DOHME LLC
  Company Number: JP-009507513-2256435

PATIENT
  Age: 45 Year
  Sex: Female
  Weight: 50 kg

DRUGS (7)
  1. ROCURONIUM BROMIDE [Suspect]
     Active Substance: ROCURONIUM BROMIDE
     Indication: General anaesthesia
     Route: 042
  2. BRIDION [Suspect]
     Active Substance: SUGAMMADEX SODIUM
     Indication: General anaesthesia
     Route: 042
  3. PROPOFOL [Suspect]
     Active Substance: PROPOFOL
     Indication: General anaesthesia
     Route: 042
  4. DEXAMETHASONE [Suspect]
     Active Substance: DEXAMETHASONE
     Indication: General anaesthesia
     Route: 042
  5. EPHEDRINE [Suspect]
     Active Substance: EPHEDRINE
     Indication: General anaesthesia
     Route: 042
  6. FENTANYL [Suspect]
     Active Substance: FENTANYL
     Indication: Postoperative analgesia
     Route: 042
  7. HYDROXYZINE [Suspect]
     Active Substance: HYDROXYZINE HYDROCHLORIDE
     Indication: Postoperative analgesia
     Route: 042

REACTIONS (2)
  - Meningioma [Recovering/Resolving]
  - Nausea [Unknown]
